FAERS Safety Report 4946915-7 (Version None)
Quarter: 2006Q1

REPORT INFORMATION
  Report Type: 
  Country: None (occurrence: None)
  Receive Date: 20060201
  Receipt Date: 20051211
  Transmission Date: 20060701
  Serious: No
  Sender: FDA-Public Use
  Company Number: 2005PV005645

PATIENT
  Age: 41 Year
  Sex: Female

DRUGS (3)
  1. BYETTA [Suspect]
     Indication: DIABETES MELLITUS NON-INSULIN-DEPENDENT
     Dosage: 10 MCG;BID;SC   10 MCG;BID;SC   5 MCG;BID;SC
     Route: 057
     Dates: start: 20050909, end: 20050101
  2. BYETTA [Suspect]
     Indication: DIABETES MELLITUS NON-INSULIN-DEPENDENT
     Dosage: 10 MCG;BID;SC   10 MCG;BID;SC   5 MCG;BID;SC
     Route: 057
     Dates: start: 20050810, end: 20050908
  3. BYETTA [Suspect]
     Indication: DIABETES MELLITUS NON-INSULIN-DEPENDENT
     Dosage: 10 MCG;BID;SC   10 MCG;BID;SC   5 MCG;BID;SC
     Route: 057
     Dates: start: 20051014

REACTIONS (1)
  - ALOPECIA [None]
